FAERS Safety Report 17913151 (Version 3)
Quarter: 2020Q3

REPORT INFORMATION
  Report Type: Spontaneous
  Country: GB (occurrence: GB)
  Receive Date: 20200618
  Receipt Date: 20200731
  Transmission Date: 20201103
  Serious: No
  Sender: FDA-Public Use
  Company Number: GB-JNJFOC-20200611065

PATIENT

DRUGS (1)
  1. DUROGESIC D?TRANS [Suspect]
     Active Substance: FENTANYL
     Indication: PRODUCT USED FOR UNKNOWN INDICATION
     Dosage: STRENGTH: 12.00 MCG/HR
     Route: 062

REACTIONS (1)
  - Product adhesion issue [Unknown]
